FAERS Safety Report 8051023-5 (Version None)
Quarter: 2012Q1

REPORT INFORMATION
  Report Type: 
  Country: None (occurrence: None)
  Receive Date: 20120117
  Receipt Date: 20120111
  Transmission Date: 20120608
  Serious: Yes (Other)
  Sender: FDA-Public Use
  Company Number: PHFR2011IE006628

PATIENT
  Sex: Male

DRUGS (1)
  1. CLOZARIL [Suspect]
     Indication: SCHIZOPHRENIA
     Route: 048
     Dates: start: 19990208

REACTIONS (6)
  - HYPOCHROMASIA [None]
  - MEAN CELL VOLUME DECREASED [None]
  - MYELOFIBROSIS [None]
  - HAEMOGLOBIN DECREASED [None]
  - METASTATIC NEOPLASM [None]
  - POIKILOCYTOSIS [None]
